FAERS Safety Report 21371563 (Version 3)
Quarter: 2022Q4

REPORT INFORMATION
  Report Type: Spontaneous
  Country: GB (occurrence: GB)
  Receive Date: 20220923
  Receipt Date: 20221202
  Transmission Date: 20230113
  Serious: Yes (Life-Threatening, Hospitalization)
  Sender: FDA-Public Use
  Company Number: GB-ROCHE-3123313

PATIENT
  Age: 63 Year
  Sex: Female
  Weight: 70.8 kg

DRUGS (22)
  1. BEVACIZUMAB [Suspect]
     Active Substance: BEVACIZUMAB
     Indication: Non-small cell lung cancer
     Dosage: 1200 MILLIGRAM
     Route: 065
     Dates: start: 20211111
  2. BEVACIZUMAB [Suspect]
     Active Substance: BEVACIZUMAB
     Indication: Non-small cell lung cancer metastatic
  3. ATEZOLIZUMAB [Suspect]
     Active Substance: ATEZOLIZUMAB
     Indication: Non-small cell lung cancer
     Dosage: 1200 MILLIGRAM
     Route: 041
     Dates: start: 20211111
  4. ATEZOLIZUMAB [Suspect]
     Active Substance: ATEZOLIZUMAB
     Indication: Non-small cell lung cancer metastatic
  5. CARBOPLATIN [Suspect]
     Active Substance: CARBOPLATIN
     Indication: Non-small cell lung cancer
     Dosage: 700 MILLIGRAM
     Route: 065
     Dates: start: 20211111
  6. CARBOPLATIN [Suspect]
     Active Substance: CARBOPLATIN
     Indication: Non-small cell lung cancer metastatic
  7. PACLITAXEL [Suspect]
     Active Substance: PACLITAXEL
     Indication: Non-small cell lung cancer
     Dosage: 420 MILLIGRAM
     Route: 065
     Dates: start: 20211111
  8. PACLITAXEL [Suspect]
     Active Substance: PACLITAXEL
     Indication: Non-small cell lung cancer metastatic
  9. CALCIUM CARBONATE\CHOLECALCIFEROL [Concomitant]
     Active Substance: CALCIUM CARBONATE\CHOLECALCIFEROL
     Dosage: UNK UNK, BID
     Route: 065
     Dates: start: 20210622
  10. ALECTINIB [Concomitant]
     Active Substance: ALECTINIB
     Indication: Neoplasm malignant
     Dosage: UNK
     Route: 065
  11. ALECTINIB [Concomitant]
     Active Substance: ALECTINIB
  12. CHLORHEXIDINE [Concomitant]
     Active Substance: CHLORHEXIDINE
     Route: 065
     Dates: start: 20211021
  13. CRIZOTINIB [Concomitant]
     Active Substance: CRIZOTINIB
     Indication: Neoplasm malignant
     Dosage: UNK
  14. CRIZOTINIB [Concomitant]
     Active Substance: CRIZOTINIB
  15. LORLATINIB [Concomitant]
     Active Substance: LORLATINIB
     Indication: Neoplasm malignant
     Dosage: UNK
  16. LORLATINIB [Concomitant]
     Active Substance: LORLATINIB
  17. METFORMIN [Concomitant]
     Active Substance: METFORMIN HYDROCHLORIDE
     Dosage: UNK UNK, BID
     Route: 065
     Dates: start: 20180101
  18. MORPHINE SULFATE [Concomitant]
     Active Substance: MORPHINE SULFATE
     Dosage: UNK, AS NECESSARY
     Route: 065
     Dates: start: 20210913
  19. ACETAMINOPHEN [Concomitant]
     Active Substance: ACETAMINOPHEN
     Dosage: UNK, AS NECESSARY
     Route: 065
     Dates: start: 20211019
  20. RAMIPRIL [Concomitant]
     Active Substance: RAMIPRIL
     Dosage: UNK
     Route: 065
     Dates: start: 20220601
  21. RIVAROXABAN [Concomitant]
     Active Substance: RIVAROXABAN
     Route: 065
  22. ROSUVASTATIN [Concomitant]
     Active Substance: ROSUVASTATIN
     Dosage: UNK UNK, QD
     Route: 065
     Dates: start: 20210114

REACTIONS (3)
  - Diarrhoea [Recovered/Resolved]
  - Vomiting [Recovered/Resolved]
  - Tooth infection [Recovered/Resolved]

NARRATIVE: CASE EVENT DATE: 20220607
